FAERS Safety Report 7021233-4 (Version None)
Quarter: 2010Q3

REPORT INFORMATION
  Report Type: 
  Country: None (occurrence: None)
  Receive Date: 20100929
  Receipt Date: 20091228
  Transmission Date: 20110219
  Serious: Yes (Other)
  Sender: FDA-Public Use
  Company Number: US-PFIZER INC-2009289180

PATIENT
  Sex: Female
  Weight: 84.4 kg

DRUGS (16)
  1. DOXORUBICIN HCL [Suspect]
     Dosage: 95 MG, 1 IN 3 WEEKS
     Dates: start: 20090520
  2. CYTOXAN [Suspect]
     Dosage: 1425 MG, 1IN 3 WEEKS
     Dates: start: 20090520
  3. RITUXIMAB [Suspect]
     Dosage: 710 MG, 1 IN 3 WEEKS
     Dates: start: 20090520
  4. NEUPOGEN [Suspect]
     Indication: NEUTROPENIA
     Dosage: 480 MCG, UNK
     Dates: start: 20090527
  5. VINCRISTINE SULFATE [Concomitant]
     Dosage: UNK, 1 IN 3 WEEKS
     Dates: start: 20090520
  6. PREDNISONE [Concomitant]
     Dosage: UNK
     Dates: start: 20090520
  7. ATORVASTATIN CALCIUM [Concomitant]
     Dosage: 10 MG, 1 IN 1 DAYS
  8. METOPROLOL TARTRATE [Concomitant]
  9. AMIODARONE [Concomitant]
     Dosage: 200 MG, 1 IN 1 DAYS
  10. LISINOPRIL [Concomitant]
     Dosage: 5 MG, 1 IN 1 DAYS
  11. ESOMEPRAZOLE MAGNESIUM [Concomitant]
     Dosage: 20 MG, 1 IN 1 DAYS
  12. LEVOTHYROXINE SODIUM [Concomitant]
     Dosage: 75 MCG, 1 IN 1 DAYS
  13. FERROUS SULFATE [Concomitant]
     Dosage: 1 IN 1 DAYS
  14. INSULIN [Concomitant]
     Dosage: UNK
  15. BUMETANIDE [Concomitant]
     Dosage: 1 MG,1 IN 1 DAYS
  16. CEFALEXIN MONOHYDRATE [Concomitant]
     Dosage: UNK

REACTIONS (1)
  - NEUTROPENIA [None]
